FAERS Safety Report 25464566 (Version 1)
Quarter: 2025Q2

REPORT INFORMATION
  Report Type: Report from Study
  Country: US (occurrence: US)
  Receive Date: 20250621
  Receipt Date: 20250621
  Transmission Date: 20250717
  Serious: Yes (Other)
  Sender: RECORDATI
  Company Number: US-ORPHANEU-2025004281

PATIENT
  Age: 52 Year
  Sex: Female

DRUGS (2)
  1. ISTURISA [Suspect]
     Active Substance: OSILODROSTAT PHOSPHATE
     Indication: Product used for unknown indication
  2. DESMOPRESSIN [Suspect]
     Active Substance: DESMOPRESSIN
     Indication: Product used for unknown indication

REACTIONS (5)
  - Hypertrophic cardiomyopathy [Unknown]
  - Blood sodium abnormal [Unknown]
  - Heart rate decreased [Unknown]
  - Nausea [Unknown]
  - Asthenia [Unknown]
